FAERS Safety Report 16583688 (Version 1)
Quarter: 2019Q3

REPORT INFORMATION
  Report Type: Spontaneous
  Country: BE (occurrence: BE)
  Receive Date: 20190717
  Receipt Date: 20190717
  Transmission Date: 20191004
  Serious: Yes (Hospitalization, Other)
  Sender: FDA-Public Use
  Company Number: BE-AMGEN-BELSP2019111001

PATIENT
  Age: 78 Year
  Sex: Female

DRUGS (6)
  1. CALCIUM [Concomitant]
     Active Substance: CALCIUM
     Dosage: UNK
     Route: 042
  2. VITAMIN D3 [Concomitant]
     Active Substance: CHOLECALCIFEROL
     Dosage: UNK
  3. BISOPROLOL [Concomitant]
     Active Substance: BISOPROLOL
     Dosage: 2.5 MILLIGRAM, QD
  4. CALCIUM [Concomitant]
     Active Substance: CALCIUM
     Dosage: UNK
     Route: 048
  5. PROLIA [Suspect]
     Active Substance: DENOSUMAB
     Indication: OSTEOPOROSIS
     Dosage: 60 MILLIGRAM, Q6MO
     Route: 065
  6. CALCIUM [Concomitant]
     Active Substance: CALCIUM
     Dosage: UNK

REACTIONS (27)
  - Deep vein thrombosis [Unknown]
  - Hypocalcaemia [Unknown]
  - Decreased appetite [Unknown]
  - Normochromic normocytic anaemia [Unknown]
  - Protein total decreased [Unknown]
  - Abdominal lymphadenopathy [Unknown]
  - Weight decreased [Unknown]
  - Diarrhoea [Unknown]
  - Intestinal perforation [Unknown]
  - Septic shock [Unknown]
  - Stool chymotrypsin abnormal [Unknown]
  - Paraesthesia [Unknown]
  - Enteropathy-associated T-cell lymphoma [Unknown]
  - Pulmonary embolism [Unknown]
  - Vitamin D decreased [Unknown]
  - Blood albumin decreased [Unknown]
  - Faecal calprotectin [Unknown]
  - Cholecystitis acute [Unknown]
  - Peritonitis [Unknown]
  - Blood parathyroid hormone increased [Unknown]
  - Coeliac disease [Unknown]
  - Hypomagnesaemia [Unknown]
  - Blood folate decreased [Unknown]
  - Genetic polymorphism [Unknown]
  - Alpha-1 anti-trypsin increased [Unknown]
  - Blood iron decreased [Unknown]
  - Antigliadin antibody positive [Unknown]
